FAERS Safety Report 5034295-0 (Version None)
Quarter: 2006Q2

REPORT INFORMATION
  Report Type: 
  Country: None (occurrence: None)
  Receive Date: 20060620
  Receipt Date: 20060612
  Transmission Date: 20061013
  Serious: Yes (Life-Threatening)
  Sender: FDA-Public Use
  Company Number: FR200606002453

PATIENT
  Age: 42 Year
  Sex: Male

DRUGS (5)
  1. XIGRIS [Suspect]
     Indication: SEPTIC SHOCK
     Dosage: INTRAVENOUS
     Route: 042
     Dates: start: 20060223, end: 20060227
  2. FRAGMIN [Concomitant]
  3. NORADRENALINE (NOREPINEPHRINE) [Concomitant]
  4. AUGMENTIN '250' [Concomitant]
  5. LEVOFLOXACIN [Concomitant]

REACTIONS (2)
  - PULMONARY EMBOLISM [None]
  - SHOCK [None]
